FAERS Safety Report 7954008-X (Version None)
Quarter: 2011Q4

REPORT INFORMATION
  Report Type: 
  Country: None (occurrence: None)
  Receive Date: 20111202
  Receipt Date: 20111202
  Transmission Date: 20120403
  Serious: Yes (Other)
  Sender: FDA-Public Use
  Company Number: None

PATIENT
  Age: 56 Year
  Sex: Male
  Weight: 83.914 kg

DRUGS (1)
  1. BACTRIM DS GENERIC [Suspect]
     Indication: URINARY TRACT INFECTION

REACTIONS (1)
  - CONSTIPATION [None]
